FAERS Safety Report 15886007 (Version 1)
Quarter: 2019Q1

REPORT INFORMATION
  Report Type: Spontaneous
  Country: US (occurrence: US)
  Receive Date: 20190129
  Receipt Date: 20190129
  Transmission Date: 20190417
  Serious: Yes (Hospitalization, Other)
  Sender: FDA-Public Use
  Company Number: US-JNJFOC-20190136273

PATIENT
  Age: 77 Year
  Sex: Female
  Weight: 77.1 kg

DRUGS (18)
  1. HALDOL [Suspect]
     Active Substance: HALOPERIDOL
     Indication: PRODUCT USED FOR UNKNOWN INDICATION
     Route: 065
     Dates: start: 201801
  2. TRESIBA [Concomitant]
     Active Substance: INSULIN DEGLUDEC
     Route: 065
  3. PROZAC [Concomitant]
     Active Substance: FLUOXETINE HYDROCHLORIDE
     Route: 065
  4. SPIRONOLACTONE. [Concomitant]
     Active Substance: SPIRONOLACTONE
     Route: 065
  5. LEVOXYL [Concomitant]
     Active Substance: LEVOTHYROXINE SODIUM
     Route: 065
  6. ASPIRIN. [Concomitant]
     Active Substance: ASPIRIN
     Route: 065
  7. NITROSTAT [Concomitant]
     Active Substance: NITROGLYCERIN
     Route: 065
  8. FLOVENT [Concomitant]
     Active Substance: FLUTICASONE PROPIONATE
     Route: 065
  9. COREG [Concomitant]
     Active Substance: CARVEDILOL
     Route: 065
  10. LOSARTAN. [Concomitant]
     Active Substance: LOSARTAN
     Route: 065
  11. NOVOLOG [Concomitant]
     Active Substance: INSULIN ASPART
     Route: 065
  12. LORATADINE. [Concomitant]
     Active Substance: LORATADINE
     Route: 065
  13. KORLYM [Suspect]
     Active Substance: MIFEPRISTONE
     Indication: CUSHING^S SYNDROME
     Route: 048
     Dates: start: 20161123
  14. VITAMIN D [Concomitant]
     Active Substance: CHOLECALCIFEROL
     Route: 065
  15. ATORVASTATIN [Concomitant]
     Active Substance: ATORVASTATIN
     Route: 065
  16. BUMEX [Concomitant]
     Active Substance: BUMETANIDE
     Route: 065
  17. ATIVAN [Suspect]
     Active Substance: LORAZEPAM
     Indication: PRODUCT USED FOR UNKNOWN INDICATION
     Route: 065
     Dates: start: 201801
  18. PLAVIX [Concomitant]
     Active Substance: CLOPIDOGREL BISULFATE
     Route: 065

REACTIONS (4)
  - Blindness [Unknown]
  - Blood potassium decreased [Recovering/Resolving]
  - Hallucination, visual [Unknown]
  - Blood creatinine increased [Unknown]

NARRATIVE: CASE EVENT DATE: 201801
